FAERS Safety Report 9292073 (Version 1)
Quarter: 2013Q2

REPORT INFORMATION
  Report Type: Spontaneous
  Country: US (occurrence: US)
  Receive Date: 20130516
  Receipt Date: 20130516
  Transmission Date: 20140414
  Serious: No
  Sender: FDA-Public Use
  Company Number: US-BIOGENIDEC-2013BI043191

PATIENT
  Sex: Female

DRUGS (4)
  1. AVONEX [Suspect]
     Indication: PRODUCT USED FOR UNKNOWN INDICATION
     Route: 030
  2. SYNTHROID [Concomitant]
  3. MULTIVITAMINS [Concomitant]
  4. OXYCODONE HCL [Concomitant]

REACTIONS (4)
  - Hypoaesthesia [Unknown]
  - Visual impairment [Unknown]
  - Pyrexia [Unknown]
  - Pain [Unknown]
